FAERS Safety Report 8006683-1 (Version None)
Quarter: 2011Q4

REPORT INFORMATION
  Report Type: 
  Country: None (occurrence: None)
  Receive Date: 20111227
  Receipt Date: 20111214
  Transmission Date: 20120403
  Serious: No
  Sender: FDA-Public Use
  Company Number: US-JNJFOC-20111206853

PATIENT
  Sex: Female
  Weight: 45.36 kg

DRUGS (4)
  1. DURAGESIC-100 [Suspect]
     Dosage: 100+50 UG/HR
     Route: 062
     Dates: start: 20090101
  2. DURAGESIC-100 [Suspect]
     Indication: PAIN
     Dosage: 100+50 UG/HR
     Route: 062
     Dates: end: 20090101
  3. METHADONE HCL [Concomitant]
     Indication: PAIN
     Dosage: 10/325
     Route: 048
     Dates: start: 20040101
  4. PERCOCET [Concomitant]
     Indication: PAIN
     Dosage: 10/325
     Route: 048
     Dates: start: 20010101

REACTIONS (2)
  - WRONG TECHNIQUE IN DRUG USAGE PROCESS [None]
  - PRODUCT QUALITY ISSUE [None]
